FAERS Safety Report 18173889 (Version 4)
Quarter: 2021Q2

REPORT INFORMATION
  Report Type: Spontaneous
  Country: US (occurrence: US)
  Receive Date: 20200819
  Receipt Date: 20210512
  Transmission Date: 20210717
  Serious: Yes (Other)
  Sender: FDA-Public Use
  Company Number: US-UCBSA-2020031788

PATIENT
  Age: 78 Year
  Sex: Female

DRUGS (44)
  1. METHADONE [Concomitant]
     Active Substance: METHADONE HYDROCHLORIDE
  2. AMLODIPINE [Concomitant]
     Active Substance: AMLODIPINE BESYLATE
  3. GLUCOSAMINE [Concomitant]
     Active Substance: GLUCOSAMINE
  4. CIMZIA [Suspect]
     Active Substance: CERTOLIZUMAB PEGOL
     Indication: RHEUMATOID ARTHRITIS
     Dosage: 400 MILLIGRAM, EV 4 WEEKS
     Route: 058
     Dates: start: 201811
  5. VITAMIN D [COLECALCIFEROL] [Concomitant]
     Active Substance: CHOLECALCIFEROL
  6. MIRALAX [Concomitant]
     Active Substance: POLYETHYLENE GLYCOL 3350
  7. COENZYME Q10 [Concomitant]
     Active Substance: DIETARY SUPPLEMENT\UBIDECARENONE
  8. UNISOM [DOXYLAMINE SUCCINATE] [Concomitant]
  9. DONA GLUCOSAMINE [Concomitant]
  10. ELIQUIS [Concomitant]
     Active Substance: APIXABAN
  11. DOXYCYCLINE HYCLATE [DOXYCYCLINE] [Concomitant]
  12. CYMBALTA [Concomitant]
     Active Substance: DULOXETINE HYDROCHLORIDE
  13. ATARAX [Concomitant]
     Active Substance: HYDROXYZINE HYDROCHLORIDE
  14. SINGULAIR [Concomitant]
     Active Substance: MONTELUKAST SODIUM
  15. PATANOL [Concomitant]
     Active Substance: OLOPATADINE HYDROCHLORIDE
  16. ALLEGRA [Concomitant]
     Active Substance: FEXOFENADINE HYDROCHLORIDE
  17. DOCUSATE SODIUM. [Concomitant]
     Active Substance: DOCUSATE SODIUM
  18. MAGNESIUM [Concomitant]
     Active Substance: MAGNESIUM
  19. THERATEARS [Concomitant]
     Active Substance: CARBOXYMETHYLCELLULOSE SODIUM
  20. LYRICA [Concomitant]
     Active Substance: PREGABALIN
  21. XANAX [Concomitant]
     Active Substance: ALPRAZOLAM
  22. LIDOCAINE. [Concomitant]
     Active Substance: LIDOCAINE
  23. PROBIOTIC [BIFIDOBACTERIUM BIFIDUM;BIFIDOBACTERIUM LACTIS;BIFIDOBACTER [Concomitant]
  24. PROLIA [Concomitant]
     Active Substance: DENOSUMAB
     Indication: PRODUCT USED FOR UNKNOWN INDICATION
  25. BENICAR [Concomitant]
     Active Substance: OLMESARTAN MEDOXOMIL
  26. PRILOSEC [Concomitant]
     Active Substance: OMEPRAZOLE MAGNESIUM
  27. FISH OIL [Concomitant]
     Active Substance: FISH OIL
  28. FEOSOL BIFERA [Concomitant]
  29. REPLENS [Concomitant]
     Active Substance: CARBOMER 934\GLYCERIN\METHYLPARABEN\PROPYLPARABEN\SODIUM HYDROXIDE
  30. MINERAL OIL. [Concomitant]
     Active Substance: MINERAL OIL
  31. MUCINEX [Concomitant]
     Active Substance: GUAIFENESIN
  32. PERCOCET [Concomitant]
     Active Substance: ACETAMINOPHEN\OXYCODONE HYDROCHLORIDE
  33. SUCRALFATE. [Concomitant]
     Active Substance: SUCRALFATE
  34. ZOCOR [Concomitant]
     Active Substance: SIMVASTATIN
  35. IPRATROPIUM [Concomitant]
     Active Substance: IPRATROPIUM
  36. CALCIUM [Concomitant]
     Active Substance: CALCIUM
  37. LORAZEPAM. [Concomitant]
     Active Substance: LORAZEPAM
  38. DIFLUCAN [Concomitant]
     Active Substance: FLUCONAZOLE
  39. IMVEXXY [Concomitant]
     Active Substance: ESTRADIOL
  40. BISACODYL. [Concomitant]
     Active Substance: BISACODYL
  41. MULTIVITAMIN [ASCORBIC ACID;BIOTIN;CALCIUM PANTOTHENATE;CYANOCOBALAMIN [Concomitant]
     Active Substance: VITAMINS
  42. CITRUCEL [Concomitant]
     Active Substance: METHYLCELLULOSE (4000 MPA.S)
  43. FUROSEMIDE. [Concomitant]
     Active Substance: FUROSEMIDE
  44. CIPRO [Concomitant]
     Active Substance: CIPROFLOXACIN HYDROCHLORIDE

REACTIONS (1)
  - Cellulitis [Recovered/Resolved]

NARRATIVE: CASE EVENT DATE: 20200719
